FAERS Safety Report 11513485 (Version 2)
Quarter: 2015Q4

REPORT INFORMATION
  Report Type: Spontaneous
  Country: IT (occurrence: IT)
  Receive Date: 20150916
  Receipt Date: 20151228
  Transmission Date: 20160304
  Serious: Yes (Hospitalization)
  Sender: FDA-Public Use
  Company Number: IT-PFIZER INC-2015309256

PATIENT
  Age: 14 Year
  Sex: Female

DRUGS (3)
  1. SOMAC [Suspect]
     Active Substance: PANTOPRAZOLE SODIUM
     Dosage: UNK
     Route: 048
     Dates: start: 20150906, end: 20150906
  2. BUSCOPAN [Suspect]
     Active Substance: BUTYLSCOPOLAMINE BROMIDE
     Dosage: 50 MG, DAILY
     Route: 048
     Dates: start: 20150906, end: 20150906
  3. UGUROL [Suspect]
     Active Substance: TRANEXAMIC ACID
     Dosage: 2500 MG, DAILY
     Route: 048
     Dates: start: 20150906, end: 20150906

REACTIONS (4)
  - Overdose [Recovering/Resolving]
  - Drug abuse [Recovering/Resolving]
  - Sopor [Recovering/Resolving]
  - Abdominal pain upper [Recovering/Resolving]

NARRATIVE: CASE EVENT DATE: 20150906
